FAERS Safety Report 8362208-2 (Version None)
Quarter: 2012Q2

REPORT INFORMATION
  Report Type: 
  Country: None (occurrence: None)
  Receive Date: 20120515
  Receipt Date: 20120509
  Transmission Date: 20120825
  Serious: Yes (Hospitalization, Other)
  Sender: FDA-Public Use
  Company Number: US-MERCK-1111USA02488

PATIENT
  Age: 59 Year
  Sex: Female
  Weight: 87 kg

DRUGS (5)
  1. FOSAMAX [Suspect]
     Indication: OSTEOPOROSIS
     Route: 048
     Dates: start: 20000101, end: 20100101
  2. ATACAND [Concomitant]
     Route: 065
     Dates: start: 19900101, end: 20101101
  3. ALENDRONATE SODIUM [Suspect]
     Indication: OSTEOPOROSIS
     Route: 048
     Dates: start: 20080101, end: 20100101
  4. FOSAMAX [Suspect]
     Route: 048
  5. BONIVA [Suspect]
     Indication: OSTEOPOROSIS
     Route: 048
     Dates: start: 20060101, end: 20080101

REACTIONS (34)
  - BRONCHITIS [None]
  - ASTHMA [None]
  - GASTROOESOPHAGEAL REFLUX DISEASE [None]
  - OSTEOPENIA [None]
  - OSTEOARTHRITIS [None]
  - ASTHENIA [None]
  - SYNCOPE [None]
  - ORAL INFECTION [None]
  - ALOPECIA [None]
  - RHEUMATIC FEVER [None]
  - PERIODONTAL DISEASE [None]
  - BODY HEIGHT DECREASED [None]
  - GINGIVAL HYPERPLASIA [None]
  - FEAR [None]
  - EYE DISORDER [None]
  - TOOTH DISORDER [None]
  - PERIODONTITIS [None]
  - CHRONIC OBSTRUCTIVE PULMONARY DISEASE [None]
  - OSTEOMYELITIS [None]
  - GENERAL PHYSICAL HEALTH DETERIORATION [None]
  - DEPRESSION [None]
  - BACK DISORDER [None]
  - OSTEONECROSIS OF JAW [None]
  - GALLBLADDER DISORDER [None]
  - ANAL FISTULA [None]
  - ARTHROPATHY [None]
  - DENTAL CARIES [None]
  - PRURITUS [None]
  - ANXIETY [None]
  - GINGIVAL BLEEDING [None]
  - LUNG DISORDER [None]
  - HYPOTHYROIDISM [None]
  - HAEMORRHOIDAL HAEMORRHAGE [None]
  - TENDONITIS [None]
